FAERS Safety Report 23539866 (Version 1)
Quarter: 2024Q1

REPORT INFORMATION
  Report Type: Spontaneous
  Country: US (occurrence: US)
  Receive Date: 20240219
  Receipt Date: 20240219
  Transmission Date: 20240409
  Serious: No
  Sender: FDA-Public Use
  Company Number: US-BIOVITRUM-2024-US-002446

PATIENT
  Age: 10 Month
  Sex: Female
  Weight: 7.7 kg

DRUGS (2)
  1. SYNAGIS [Suspect]
     Active Substance: PALIVIZUMAB
     Indication: Premature baby
     Dosage: 100MGSDV/INJPF1ML1^S?ONCE A MONTH
     Route: 030
  2. SYNAGIS [Suspect]
     Active Substance: PALIVIZUMAB
     Indication: Antiviral prophylaxis
     Dosage: 50MGSDV/INJPF?ONCE A MONTH
     Route: 030

REACTIONS (2)
  - Illness [Unknown]
  - Product dose omission issue [Unknown]
